FAERS Safety Report 10152437 (Version 2)
Quarter: 2014Q2

REPORT INFORMATION
  Report Type: Spontaneous
  Country: US (occurrence: US)
  Receive Date: 20140505
  Receipt Date: 20140505
  Transmission Date: 20141212
  Serious: Yes (Other)
  Sender: FDA-Public Use
  Company Number: US-TEVA-383644USA

PATIENT
  Sex: Male

DRUGS (1)
  1. CLARAVIS [Suspect]
     Indication: ACNE
     Dates: start: 20121011, end: 201212

REACTIONS (3)
  - Acne fulminans [Recovering/Resolving]
  - Paronychia [Recovering/Resolving]
  - Infection [Unknown]
